FAERS Safety Report 4699402-8 (Version None)
Quarter: 2005Q2

REPORT INFORMATION
  Report Type: 
  Country: None (occurrence: None)
  Receive Date: 20050622
  Receipt Date: 20050610
  Transmission Date: 20051028
  Serious: No
  Sender: FDA-Public Use
  Company Number: MK200506-0126-1

PATIENT
  Age: 45 Year
  Sex: Female

DRUGS (1)
  1. HEXABRIX [Suspect]
     Indication: ARTHROGRAM
     Dosage: 20 ML, SINGLE USE, IA
     Route: 014

REACTIONS (6)
  - LATENT TETANY [None]
  - OFF LABEL USE [None]
  - POST PROCEDURAL COMPLICATION [None]
  - PYREXIA [None]
  - TACHYPNOEA [None]
  - TREMOR [None]
